FAERS Safety Report 25307302 (Version 1)
Quarter: 2025Q2

REPORT INFORMATION
  Report Type: Spontaneous
  Country: CN (occurrence: CN)
  Receive Date: 20250513
  Receipt Date: 20250513
  Transmission Date: 20250717
  Serious: Yes (Other)
  Sender: FRESENIUS KABI
  Company Number: CN-FreseniusKabi-FK202506809

PATIENT
  Age: 63 Year
  Sex: Male
  Weight: 71.8 kg

DRUGS (5)
  1. PROPOFOL [Suspect]
     Active Substance: PROPOFOL
     Indication: Induction of anaesthesia
     Dosage: FOA: INJECTION?ROA: INTRAVENOUS INJECTION
     Route: 042
     Dates: start: 20250418, end: 20250418
  2. ETOMIDATE [Suspect]
     Active Substance: ETOMIDATE
     Indication: Induction of anaesthesia
     Dosage: FOA: INJECTION?ROA: INTRAVENOUS INJECTION
     Route: 042
     Dates: start: 20250418, end: 20250418
  3. SUFENTANIL CITRATE [Suspect]
     Active Substance: SUFENTANIL CITRATE
     Indication: Induction of anaesthesia
     Dosage: FOA: INJECTION?ROA: INTRAVENOUS INJECTION
     Route: 042
     Dates: start: 20250418, end: 20250418
  4. REMIMAZOLAM TOSYLATE [Suspect]
     Active Substance: REMIMAZOLAM TOSYLATE
     Indication: Induction of anaesthesia
     Dosage: FOA: POWDER FOR INJECTION?ROA: PUMP INJECTION
     Dates: start: 20250418, end: 20250418
  5. CISATRACURIUM BESYLATE [Concomitant]
     Active Substance: CISATRACURIUM BESYLATE
     Indication: Induction of anaesthesia
     Dosage: FOA: INJECTION?ROA: INTRAVENOUS INJECTION
     Route: 042
     Dates: start: 20250418, end: 20250418

REACTIONS (1)
  - Anaphylactic shock [Recovered/Resolved]

NARRATIVE: CASE EVENT DATE: 20250418
